FAERS Safety Report 21009076 (Version 1)
Quarter: 2022Q2

REPORT INFORMATION
  Report Type: Spontaneous
  Country: GB (occurrence: GB)
  Receive Date: 20220627
  Receipt Date: 20220627
  Transmission Date: 20220721
  Serious: Yes (Disabling)
  Sender: FDA-Public Use
  Company Number: None

PATIENT
  Age: 84 Year
  Sex: Female
  Weight: 57 kg

DRUGS (8)
  1. CLINDAMYCIN [Suspect]
     Active Substance: CLINDAMYCIN
     Indication: Product used for unknown indication
     Dosage: 600 MILLIGRAM DAILY; UNIT STRENGTH: 150 MG, UNIT DOSE : 300 MG, FREQUENCY :2,  FREQUENCY TIME : 1 DA
     Route: 065
     Dates: start: 20220518, end: 20220614
  2. CITALOPRAM [Concomitant]
     Active Substance: CITALOPRAM HYDROBROMIDE
     Indication: Product used for unknown indication
     Dosage: 1 DOSAGE FORMS DAILY; EACH MORNING, UNIT DOSE : 1 DOSAGE FORMS , FREQUENCY : 1 , FREQUENCY TIME : 1
     Dates: start: 20220107
  3. CLARITHROMYCIN [Concomitant]
     Active Substance: CLARITHROMYCIN
     Indication: Product used for unknown indication
     Dosage: 2 DOSAGE FORMS DAILY; THERAPY DURATION : 5 DAYS, UNIT DOSE : 1 DOSAGE FORMS , FREQUENCY : 2, FREQUEN
     Dates: start: 20220421, end: 20220426
  4. FEXOFENADINE [Concomitant]
     Active Substance: FEXOFENADINE HYDROCHLORIDE
     Indication: Product used for unknown indication
     Dosage: 1 DOSAGE FORMS DAILY; UNIT DOSE : 1 DOSAGE FORMS , FREQUENCY : 1 , FREQUENCY TIME : 1 DAYS
     Dates: start: 20220613
  5. LINAGLIPTIN [Concomitant]
     Active Substance: LINAGLIPTIN
     Indication: Product used for unknown indication
     Dosage: 1 DOSAGE FORMS DAILY; UNIT DOSE : 1 DOSAGE FORMS , FREQUENCY : 1 , FREQUENCY TIME : 1 DAYS
     Dates: start: 20220506
  6. METFORMIN [Concomitant]
     Active Substance: METFORMIN HYDROCHLORIDE
     Indication: Product used for unknown indication
     Dosage: 1 DOSAGE FORMS DAILY; IN MORNING WITH BREAKFAST, THERAPY DURATION : 119 DAYS, UNIT DOSE : 1 DOSAGE F
     Dates: start: 20220107, end: 20220506
  7. RAMIPRIL [Concomitant]
     Active Substance: RAMIPRIL
     Indication: Product used for unknown indication
     Dosage: 1 DOSAGE FORMS DAILY; THERAPY DURATION : 119  DAYS
     Dates: start: 20220107, end: 20220506
  8. SODIUM BICARBONATE [Concomitant]
     Active Substance: SODIUM BICARBONATE
     Indication: Product used for unknown indication
     Dosage: 8 GTT DAILY; PLEASE APPLY 2 DROPS IN BOTH EARS, THERAPY DURATION : 28  DAYS, UNIT DOSE : 4 GTT , FRE
     Dates: start: 20220325, end: 20220422

REACTIONS (3)
  - Urticaria [Unknown]
  - Erythema [Unknown]
  - Pruritus [Unknown]

NARRATIVE: CASE EVENT DATE: 20220614
